FAERS Safety Report 6580651-9 (Version None)
Quarter: 2010Q1

REPORT INFORMATION
  Report Type: 
  Country: None (occurrence: None)
  Receive Date: 20100203
  Receipt Date: 20100119
  Transmission Date: 20100710
  Serious: Yes (Other)
  Sender: FDA-Public Use
  Company Number: 2010S1000389

PATIENT
  Age: 60 Year
  Sex: Male

DRUGS (11)
  1. PHOSPHOSODA FLAVOR NOT SPECIFIED [Suspect]
     Indication: COLONOSCOPY
     Dosage: PO
     Route: 048
     Dates: start: 20050331
  2. CELEBREX [Concomitant]
  3. PROTONIX [Concomitant]
  4. PLETAL [Concomitant]
  5. DILTIAZEM HCL [Concomitant]
  6. QUININE SULFATE [Concomitant]
  7. ALTACE [Concomitant]
  8. GLYBURIDE [Concomitant]
  9. METFORMIN [Concomitant]
  10. REGLAN [Concomitant]
  11. CARAFATE [Concomitant]

REACTIONS (2)
  - RENAL DISORDER [None]
  - RENAL IMPAIRMENT [None]
